FAERS Safety Report 6003970-3 (Version None)
Quarter: 2008Q4

REPORT INFORMATION
  Report Type: 
  Country: None (occurrence: None)
  Receive Date: 20081212
  Receipt Date: 20081127
  Transmission Date: 20090506
  Serious: Yes (Other)
  Sender: FDA-Public Use
  Company Number: 2008S1017479

PATIENT
  Age: 54 Year
  Sex: Female

DRUGS (2)
  1. NEBIVOLOL HCL [Suspect]
     Indication: HYPERTENSION
     Dosage: 2.5 MG; DAILY; ORAL
     Route: 048
     Dates: start: 20080108
  2. SIMVASTATIN [Concomitant]

REACTIONS (1)
  - LUPUS-LIKE SYNDROME [None]
